FAERS Safety Report 20837287 (Version 8)
Quarter: 2023Q1

REPORT INFORMATION
  Report Type: Other
  Country: CA (occurrence: None)
  Receive Date: 20220517
  Receipt Date: 20230102
  Transmission Date: 20230418
  Serious: Yes (Hospitalization)
  Sender: FDA-Public Use
  Company Number: CA-ROCHE-3093981

PATIENT
  Age: 30 Year
  Sex: Female
  Weight: 60.1 kg

DRUGS (3)
  1. OCREVUS [Suspect]
     Active Substance: OCRELIZUMAB
     Indication: Relapsing-remitting multiple sclerosis
     Dosage: 300 MG AT DAY 0 AND 14, THEN 600 MG EVERY 6 MONTH
     Route: 042
     Dates: start: 20220312
  2. BACLOFEN [Suspect]
     Active Substance: BACLOFEN
     Indication: Product used for unknown indication
     Route: 065
  3. PAXLOVID [Concomitant]
     Active Substance: NIRMATRELVIR\RITONAVIR

REACTIONS (10)
  - SARS-CoV-2 test positive [Unknown]
  - Ear infection [Recovered/Resolved]
  - Immunodeficiency [Unknown]
  - Rubber sensitivity [Unknown]
  - Drug hypersensitivity [Unknown]
  - Seizure [Recovered/Resolved]
  - Fatigue [Unknown]
  - Infusion related reaction [Unknown]
  - Infusion related reaction [Not Recovered/Not Resolved]
  - Vomiting [Not Recovered/Not Resolved]

NARRATIVE: CASE EVENT DATE: 20220312
